FAERS Safety Report 9100202 (Version 1)
Quarter: 2013Q1

REPORT INFORMATION
  Report Type: Spontaneous
  Country: BR (occurrence: BR)
  Receive Date: 20130215
  Receipt Date: 20130215
  Transmission Date: 20140127
  Serious: Yes (Hospitalization)
  Sender: FDA-Public Use
  Company Number: BR-JNJFOC-20130206735

PATIENT
  Sex: Female
  Weight: 77 kg

DRUGS (9)
  1. PARACETAMOL [Suspect]
     Indication: PRODUCT USED FOR UNKNOWN INDICATION
     Route: 065
  2. TRAMAL [Concomitant]
     Route: 065
  3. MABTHERA [Concomitant]
     Route: 065
     Dates: start: 20100601, end: 20121003
  4. LOSARTAN [Concomitant]
     Route: 065
  5. PREDNISONE [Concomitant]
     Route: 065
  6. OMEPRAZOLE [Concomitant]
     Route: 065
  7. PENTALAC [Concomitant]
     Route: 065
  8. NEOMYCIN [Concomitant]
     Route: 065
  9. DIURILIX [Concomitant]

REACTIONS (5)
  - Skin discolouration [Unknown]
  - Pyrexia [Unknown]
  - Swelling [Unknown]
  - Back pain [Unknown]
  - Arthralgia [Unknown]
